FAERS Safety Report 9675734 (Version 2)
Quarter: 2013Q4

REPORT INFORMATION
  Report Type: Report from Study
  Country: US (occurrence: US)
  Receive Date: 20131107
  Receipt Date: 20131125
  Transmission Date: 20140711
  Serious: Yes (Hospitalization)
  Sender: FDA-Public Use
  Company Number: US-ACTELION-A-NJ2013-90684

PATIENT
  Age: 69 Year
  Sex: Female

DRUGS (16)
  1. TRACLEER [Suspect]
     Indication: PULMONARY ARTERIAL HYPERTENSION
     Dosage: 125 MG, BID
     Route: 048
     Dates: start: 201205
  2. TRACLEER [Suspect]
     Dosage: 62.5 MG, BID
     Route: 048
     Dates: start: 201204, end: 201205
  3. LORAZEPAM [Concomitant]
     Dosage: 0.5 MG, TID
  4. DEXAMETHASONE [Concomitant]
     Dosage: 4 MG, BID
  5. MAG64 [Concomitant]
     Dosage: 64 MG, UNK
  6. KLOR-CON [Concomitant]
     Dosage: 20 MEQ, UNK
  7. FUROSEMIDE [Concomitant]
     Dosage: 20 MG, UNK
  8. ACYCLOVIR [Concomitant]
     Dosage: 400 MG, UNK
  9. ONDANSETRON [Concomitant]
     Dosage: 8 MG, EVERY 4-6 HOURS
  10. OXYCODONE HCL [Concomitant]
     Dosage: 5 MG, Q6HRS
  11. MULTIVITAMIN [Concomitant]
     Dosage: 1 T, QD
  12. ASPIRIN [Concomitant]
     Dosage: 81 MG, UNK
  13. COZAAR [Concomitant]
     Dosage: 100 MG, UNK
  14. NIACIN [Concomitant]
     Dosage: 500 MG, UNK
  15. VENTOLIN HFA [Concomitant]
     Dosage: 2 PUFF, Q4-6H
  16. CALCIUM [Concomitant]
     Dosage: 500 MG, UNK

REACTIONS (11)
  - Plasma cell myeloma [Not Recovered/Not Resolved]
  - Condition aggravated [Not Recovered/Not Resolved]
  - Renal failure [Not Recovered/Not Resolved]
  - Hypercalcaemia [Not Recovered/Not Resolved]
  - Pulmonary hypertension [Not Recovered/Not Resolved]
  - Dyspnoea [Not Recovered/Not Resolved]
  - Dyspnoea exertional [Not Recovered/Not Resolved]
  - Hypoxia [Not Recovered/Not Resolved]
  - Pleural effusion [Not Recovered/Not Resolved]
  - Cardiomegaly [Not Recovered/Not Resolved]
  - Oedema peripheral [Unknown]
